FAERS Safety Report 8362535-9 (Version None)
Quarter: 2012Q2

REPORT INFORMATION
  Report Type: 
  Country: None (occurrence: None)
  Receive Date: 20120516
  Receipt Date: 20120504
  Transmission Date: 20120825
  Serious: Yes (Hospitalization, Other)
  Sender: FDA-Public Use
  Company Number: FR-BRISTOL-MYERS SQUIBB COMPANY-16554412

PATIENT
  Age: 68 Year
  Sex: Male

DRUGS (3)
  1. TASIGNA [Suspect]
     Indication: CHRONIC MYELOID LEUKAEMIA
     Dosage: 600 MG 1/D ORALLY FROM 08APR-14FEB12
     Route: 048
     Dates: start: 20080422, end: 20100209
  2. SPRYCEL [Suspect]
     Indication: CHRONIC MYELOID LEUKAEMIA
     Route: 048
     Dates: start: 20080226, end: 20080407
  3. GLEEVEC [Suspect]
     Indication: CHRONIC MYELOID LEUKAEMIA
     Route: 048
     Dates: start: 20061215, end: 20080225

REACTIONS (4)
  - CARDIAC FAILURE [None]
  - NECROSIS ISCHAEMIC [None]
  - PLEURAL EFFUSION [None]
  - PERIPHERAL ISCHAEMIA [None]
